FAERS Safety Report 10175890 (Version 3)
Quarter: 2014Q4

REPORT INFORMATION
  Report Type: Report from Study
  Country: NL (occurrence: NL)
  Receive Date: 20140516
  Receipt Date: 20141107
  Transmission Date: 20150528
  Serious: Yes (Hospitalization)
  Sender: FDA-Public Use
  Company Number: NL-ROCHE-1398135

PATIENT
  Age: 67 Year
  Sex: Female
  Weight: 61.5 kg

DRUGS (4)
  1. OXALIPLATIN. [Suspect]
     Active Substance: OXALIPLATIN
     Indication: GASTRIC CANCER
     Dosage: LAST DOSE PRIOR TO SAE WAS ON 15/JUL/2014.
     Route: 042
     Dates: start: 20131231
  2. BEVACIZUMAB [Suspect]
     Active Substance: BEVACIZUMAB
     Indication: GASTRIC CANCER
     Dosage: LAST DOSE PRIOR TO SAE 15/JUL/2014; THERAPY DISCONTINUED
     Route: 042
     Dates: start: 20131231
  3. DOCETAXEL. [Suspect]
     Active Substance: DOCETAXEL
     Indication: GASTRIC CANCER
     Dosage: LAST DOSE PRIOR TO SAE WAS ON 15/JUL/2014.
     Route: 042
     Dates: start: 20131231
  4. CAPECITABINE. [Suspect]
     Active Substance: CAPECITABINE
     Indication: GASTRIC CANCER
     Dosage: LAST DOSE PRIOR TO SAE 15/JUL/2014. TWICE A DAY 1-14
     Route: 048
     Dates: start: 20131231

REACTIONS (3)
  - Post procedural haemorrhage [Recovered/Resolved]
  - Hydronephrosis [Recovering/Resolving]
  - Pyrexia [Recovered/Resolved]

NARRATIVE: CASE EVENT DATE: 20140408
